FAERS Safety Report 4431234-8 (Version None)
Quarter: 2004Q3

REPORT INFORMATION
  Report Type: 
  Country: None (occurrence: None)
  Receive Date: 20040818
  Receipt Date: 20040805
  Transmission Date: 20050211
  Serious: Yes (Disabling, Other)
  Sender: FDA-Public Use
  Company Number: 2004037007

PATIENT
  Age: 53 Year
  Sex: Female
  Weight: 50 kg

DRUGS (3)
  1. ZITHROMAX [Suspect]
     Indication: BRONCHITIS
     Dosage: 500 MG (250 MG, 2 IN 1 D), ORAL
     Route: 048
     Dates: start: 20040308, end: 20040309
  2. ZITHROMAX [Suspect]
     Indication: UPPER RESPIRATORY TRACT INFECTION
     Dosage: 500 MG (250 MG, 2 IN 1 D), ORAL
     Route: 048
     Dates: start: 20040308, end: 20040309
  3. MESNA [Concomitant]

REACTIONS (4)
  - AUDIOGRAM ABNORMAL [None]
  - DEAFNESS UNILATERAL [None]
  - SENSATION OF PRESSURE IN EAR [None]
  - TINNITUS [None]
